FAERS Safety Report 20037597 (Version 2)
Quarter: 2022Q1

REPORT INFORMATION
  Report Type: Spontaneous
  Country: TR (occurrence: TR)
  Receive Date: 20211105
  Receipt Date: 20220110
  Transmission Date: 20220423
  Serious: Yes (Other)
  Sender: FDA-Public Use
  Company Number: TR-NOVOPROD-818767

PATIENT
  Sex: Male

DRUGS (1)
  1. NOVOEIGHT [Suspect]
     Active Substance: ANTIHEMOPHILIC FACTOR, HUMAN RECOMBINANT
     Indication: Product used for unknown indication
     Dosage: 500 IU, TIW
     Route: 065
     Dates: start: 20210410

REACTIONS (3)
  - Seizure [Recovered/Resolved]
  - Confusional state [Recovered/Resolved]
  - Strabismus [Recovered/Resolved]
